FAERS Safety Report 4906414-5 (Version None)
Quarter: 2006Q1

REPORT INFORMATION
  Report Type: 
  Country: None (occurrence: None)
  Receive Date: 20060209
  Receipt Date: 20051118
  Transmission Date: 20060701
  Serious: Yes (Hospitalization)
  Sender: FDA-Public Use
  Company Number: PHNU2005DE03808

PATIENT
  Age: 74 Year
  Sex: Male

DRUGS (3)
  1. MYFORTIC [Suspect]
     Indication: PHOTOSENSITIVITY REACTION
     Dosage: 1 DF, BID
     Dates: start: 20051001
  2. GLIBENCLAMIDE [Concomitant]
  3. APROVEL [Concomitant]

REACTIONS (4)
  - CONSTIPATION [None]
  - DYSPEPSIA [None]
  - GASTROINTESTINAL DISORDER [None]
  - PHOTOSENSITIVITY REACTION [None]
